FAERS Safety Report 4594924-2 (Version None)
Quarter: 2005Q1

REPORT INFORMATION
  Report Type: 
  Country: None (occurrence: None)
  Receive Date: 20050224
  Receipt Date: 20040405
  Transmission Date: 20050727
  Serious: Yes (Hospitalization)
  Sender: FDA-Public Use
  Company Number: GXKR2004GB00742

PATIENT
  Age: 67 Year
  Sex: Female

DRUGS (2)
  1. ATENOLOL [Suspect]
     Indication: HYPERTENSION
     Dosage: 25-50 MG
  2. ACE INHIBITOR NOS (NO INGREDIENTS/SUBSTANCES) [Concomitant]

REACTIONS (8)
  - CARDIAC FAILURE CONGESTIVE [None]
  - CARDIAC PACEMAKER MALFUNCTION [None]
  - DIZZINESS [None]
  - LETHARGY [None]
  - MALAISE [None]
  - PALLOR [None]
  - RENAL FAILURE [None]
  - SINUS BRADYCARDIA [None]
